FAERS Safety Report 5511968-4 (Version None)
Quarter: 2007Q4

REPORT INFORMATION
  Report Type: 
  Country: None (occurrence: None)
  Receive Date: 20071109
  Receipt Date: 20071031
  Transmission Date: 20080405
  Serious: Yes (Death, Hospitalization)
  Sender: FDA-Public Use
  Company Number: FR-MERCK-0711FRA00002

PATIENT
  Age: 81 Year
  Sex: Female

DRUGS (6)
  1. CEFAMANDOLE [Suspect]
     Route: 042
     Dates: start: 20070502, end: 20070503
  2. FLUINDIONE [Suspect]
     Route: 048
     Dates: end: 20070501
  3. COZAAR [Suspect]
     Indication: HYPERTENSIVE CARDIOMYOPATHY
     Route: 048
  4. FUROSEMIDE [Suspect]
     Indication: HYPERTENSIVE CARDIOMYOPATHY
     Route: 048
  5. NITROGLYCERIN [Suspect]
     Route: 061
  6. PRAVASTATIN SODIUM [Suspect]
     Indication: DYSLIPIDAEMIA
     Route: 048

REACTIONS (4)
  - DRUG INTERACTION [None]
  - HAEMATOMA [None]
  - MELAENA [None]
  - SHOCK HAEMORRHAGIC [None]
